FAERS Safety Report 5121594-7 (Version None)
Quarter: 2006Q4

REPORT INFORMATION
  Report Type: 
  Country: None (occurrence: None)
  Receive Date: 20061003
  Receipt Date: 20060919
  Transmission Date: 20070319
  Serious: Yes (Hospitalization, Other)
  Sender: FDA-Public Use
  Company Number: 2006RR-03819

PATIENT
  Age: 38 Year
  Sex: Female

DRUGS (1)
  1. CLARITHROMYCIN [Suspect]
     Indication: PHARYNGITIS

REACTIONS (8)
  - BLOOD PRESSURE INCREASED [None]
  - HEADACHE [None]
  - MOUTH ULCERATION [None]
  - NIGHT SWEATS [None]
  - PYREXIA [None]
  - RASH [None]
  - TACHYCARDIA [None]
  - TUBULOINTERSTITIAL NEPHRITIS [None]
